FAERS Safety Report 12889237 (Version 1)
Quarter: 2016Q4

REPORT INFORMATION
  Report Type: Report from Study
  Country: BR (occurrence: BR)
  Receive Date: 20161027
  Receipt Date: 20161027
  Transmission Date: 20170207
  Serious: Yes (Other)
  Sender: FDA-Public Use
  Company Number: PHHY2016BR148050

PATIENT
  Age: 75 Year
  Sex: Male
  Weight: 93 kg

DRUGS (1)
  1. DIOVAN AMLO FIX [Suspect]
     Active Substance: AMLODIPINE\VALSARTAN
     Indication: HYPERTENSION
     Dosage: 1 DF (AMLODIPINE 10 MG, VALSARTAN 230 MG), QD (IN THE MORNING)
     Route: 048

REACTIONS (2)
  - Cerebrovascular accident [Recovering/Resolving]
  - Weight increased [Unknown]

NARRATIVE: CASE EVENT DATE: 201405
